FAERS Safety Report 24986051 (Version 1)
Quarter: 2025Q1

REPORT INFORMATION
  Report Type: Spontaneous
  Country: US (occurrence: None)
  Receive Date: 20250218
  Receipt Date: 20250218
  Transmission Date: 20250408
  Serious: Yes (Death)
  Sender: FDA-CTU
  Company Number: None

PATIENT
  Age: 29 Year
  Sex: Male
  Weight: 76.7 kg

DRUGS (1)
  1. CEFTRIAXONE [Suspect]
     Active Substance: CEFTRIAXONE
     Dosage: FREQUENCY : DAILY;?
     Route: 042

REACTIONS (14)
  - Hypertension [None]
  - Haemodialysis [None]
  - Hypotension [None]
  - Localised infection [None]
  - Pneumonia [None]
  - Vomiting [None]
  - Unresponsive to stimuli [None]
  - Eye movement disorder [None]
  - Tachycardia [None]
  - Oxygen saturation decreased [None]
  - Sinus bradycardia [None]
  - Pulseless electrical activity [None]
  - Anaphylactic shock [None]
  - Cardio-respiratory arrest [None]

NARRATIVE: CASE EVENT DATE: 20240124
